FAERS Safety Report 5442929-1 (Version None)
Quarter: 2007Q3

REPORT INFORMATION
  Report Type: 
  Country: None (occurrence: None)
  Receive Date: 20070830
  Receipt Date: 20070822
  Transmission Date: 20080115
  Serious: Yes (Other)
  Sender: FDA-Public Use
  Company Number: 2007JP003590

PATIENT
  Age: 75 Year
  Sex: Female

DRUGS (4)
  1. VESICARE [Suspect]
     Dosage: 5 MG, ORAL
     Route: 048
     Dates: end: 20070723
  2. TOLEDOMIN(MILNACIPRAN HYDROCHLORIDE) PER ORAL NOS [Suspect]
     Dosage: 30 MG, ORAL
     Route: 048
     Dates: end: 20070729
  3. NITRAZEPAM [Concomitant]
  4. DIOVAN [Concomitant]

REACTIONS (1)
  - ANGLE CLOSURE GLAUCOMA [None]
